FAERS Safety Report 21916705 (Version 2)
Quarter: 2023Q1

REPORT INFORMATION
  Report Type: Spontaneous
  Country: BR (occurrence: BR)
  Receive Date: 20230126
  Receipt Date: 20230224
  Transmission Date: 20230418
  Serious: Yes (Other)
  Sender: FDA-Public Use
  Company Number: BR-TEVA-2023-BR-2848757

PATIENT
  Age: 32 Year
  Sex: Male

DRUGS (4)
  1. CARBOPLATIN [Suspect]
     Active Substance: CARBOPLATIN
     Indication: Burkitt^s lymphoma
     Dosage: R-ICE REGIMEN
     Route: 065
  2. RITUXIMAB [Suspect]
     Active Substance: RITUXIMAB
     Indication: Burkitt^s lymphoma
     Dosage: R-DAEPOCH REGIMEN AND R-ICE REGIMEN , ACTION TAKEN: AFTER LOE, RITUXIMAB RECEIVED AS A PART OF R-ICE
     Route: 065
  3. IFOSFAMIDE [Suspect]
     Active Substance: IFOSFAMIDE
     Indication: Burkitt^s lymphoma
     Dosage: R-ICE REGIMEN
     Route: 065
  4. ETOPOSIDE [Suspect]
     Active Substance: ETOPOSIDE
     Indication: Burkitt^s lymphoma
     Dosage: R-DAEPOCH AND R-ICE REGIMEN , ADDITIONAL INFO: ACTION TAKEN: AFTER LOE, RITUXIMAB RECEIVED AS A PART
     Route: 065

REACTIONS (2)
  - Spinal cord disorder [Recovered/Resolved]
  - Infection [Unknown]
